FAERS Safety Report 4588791-0 (Version None)
Quarter: 2005Q1

REPORT INFORMATION
  Report Type: 
  Country: None (occurrence: None)
  Receive Date: 20050222
  Receipt Date: 20050210
  Transmission Date: 20050727
  Serious: Yes (Other)
  Sender: FDA-Public Use
  Company Number: BE-JNJFOC-20050203173

PATIENT
  Sex: Male

DRUGS (3)
  1. RISPERDAL [Suspect]
     Route: 049
  2. RISPERDAL [Suspect]
     Indication: PSYCHOTIC DISORDER
     Route: 049
  3. DIPIPERON [Concomitant]

REACTIONS (2)
  - BREAST SWELLING [None]
  - HYPERPROLACTINAEMIA [None]
